FAERS Safety Report 17977722 (Version 2)
Quarter: 2020Q3

REPORT INFORMATION
  Report Type: Spontaneous
  Country: FR (occurrence: FR)
  Receive Date: 20200703
  Receipt Date: 20200714
  Transmission Date: 20201103
  Serious: Yes (Disabling, Other)
  Sender: FDA-Public Use
  Company Number: FR-ROCHE-2634982

PATIENT
  Age: 57 Year
  Sex: Male

DRUGS (3)
  1. FLUOCINOLONE ACETONIDE. [Suspect]
     Active Substance: FLUOCINOLONE ACETONIDE
     Indication: PRODUCT USED FOR UNKNOWN INDICATION
     Dosage: UNK
     Route: 042
     Dates: start: 20190425
  2. LUCENTIS [Suspect]
     Active Substance: RANIBIZUMAB
     Indication: PRODUCT USED FOR UNKNOWN INDICATION
     Route: 042
     Dates: start: 20200213
  3. OZURDEX [Suspect]
     Active Substance: DEXAMETHASONE
     Indication: PRODUCT USED FOR UNKNOWN INDICATION
     Route: 042
     Dates: start: 20191128

REACTIONS (6)
  - Retinal detachment [Unknown]
  - Retinitis viral [Unknown]
  - Hypotony of eye [Unknown]
  - Eye infection [Unknown]
  - Necrotising retinitis [Unknown]
  - Sudden visual loss [Not Recovered/Not Resolved]

NARRATIVE: CASE EVENT DATE: 202001
